FAERS Safety Report 10893160 (Version 2)
Quarter: 2015Q1

REPORT INFORMATION
  Report Type: Spontaneous
  Country: US (occurrence: US)
  Receive Date: 20150306
  Receipt Date: 20150311
  Transmission Date: 20150721
  Serious: Yes (Death, Hospitalization)
  Sender: FDA-Public Use
  Company Number: US-FRI-1000074857

PATIENT
  Age: 47 Year
  Sex: Male

DRUGS (4)
  1. LINZESS [Suspect]
     Active Substance: LINACLOTIDE
     Indication: CONSTIPATION
     Dosage: 145 MCG
  2. VALIUM [Concomitant]
     Active Substance: DIAZEPAM
  3. VICODIN [Concomitant]
     Active Substance: ACETAMINOPHEN\HYDROCODONE BITARTRATE
  4. LINZESS [Suspect]
     Active Substance: LINACLOTIDE
     Dosage: 290 MCG

REACTIONS (2)
  - Death [Fatal]
  - Faecal vomiting [Fatal]

NARRATIVE: CASE EVENT DATE: 201502
